FAERS Safety Report 6868900-0 (Version None)
Quarter: 2010Q3

REPORT INFORMATION
  Report Type: 
  Country: None (occurrence: None)
  Receive Date: 20100722
  Receipt Date: 20080627
  Transmission Date: 20110219
  Serious: No
  Sender: FDA-Public Use
  Company Number: US-PFIZER INC-2008049009

PATIENT
  Sex: Male
  Weight: 88.45 kg

DRUGS (9)
  1. CHANTIX [Suspect]
     Indication: SMOKING CESSATION THERAPY
     Route: 048
     Dates: start: 20080501
  2. OXYCODONE [Concomitant]
     Indication: PAIN
     Route: 048
  3. LISINOPRIL [Concomitant]
     Indication: HYPERTENSION
     Route: 048
  4. CRESTOR [Concomitant]
     Indication: BLOOD CHOLESTEROL ABNORMAL
     Route: 048
  5. KEPPRA [Concomitant]
     Route: 048
  6. PROZAC [Concomitant]
     Route: 048
  7. DEPAKOTE [Concomitant]
     Route: 048
  8. CLONAZEPAM [Concomitant]
     Route: 048
  9. ZANTAC [Concomitant]

REACTIONS (7)
  - CONFUSIONAL STATE [None]
  - DEPRESSION [None]
  - FATIGUE [None]
  - INSOMNIA [None]
  - STRESS [None]
  - SWELLING FACE [None]
  - TOOTH EXTRACTION [None]
